FAERS Safety Report 10367827 (Version 1)
Quarter: 2014Q3

REPORT INFORMATION
  Report Type: Spontaneous
  Country: GB (occurrence: None)
  Receive Date: 20140805
  Receipt Date: 20140805
  Transmission Date: 20150326
  Serious: Yes (Other)
  Sender: FDA-Public Use
  Company Number: AUR-APL-2014-08224

PATIENT
  Age: 43 Year
  Sex: Male
  Weight: 79 kg

DRUGS (2)
  1. TRAMADOL 50MG (TRAMADOL) UNKNOWN, 50MG [Suspect]
     Active Substance: TRAMADOL
     Indication: PAIN
  2. METHOTREXATE (METHTREXATE) [Concomitant]

REACTIONS (4)
  - Convulsion [None]
  - Dizziness [None]
  - Epilepsy [None]
  - Loss of consciousness [None]
